FAERS Safety Report 5930314-5 (Version None)
Quarter: 2008Q4

REPORT INFORMATION
  Report Type: 
  Country: None (occurrence: None)
  Receive Date: 20081024
  Receipt Date: 20081015
  Transmission Date: 20090506
  Serious: Yes (Other)
  Sender: FDA-Public Use
  Company Number: ES-MERCK-0806ESP00047

PATIENT
  Age: 51 Year
  Sex: Female

DRUGS (5)
  1. FOSAMAX PLUS D [Suspect]
     Indication: OSTEOPENIA
     Route: 048
     Dates: start: 20060101
  2. CALCIUM (UNSPECIFIED) [Concomitant]
     Route: 065
  3. LECITHIN [Concomitant]
     Route: 065
  4. VITAMIN B (UNSPECIFIED) [Concomitant]
     Route: 065
  5. MAGNESIUM (UNSPECIFIED) [Concomitant]
     Route: 065

REACTIONS (9)
  - HAEMORRHOIDS [None]
  - INTESTINAL POLYP [None]
  - LYMPHOCYTOSIS [None]
  - MEAN CELL HAEMOGLOBIN CONCENTRATION ABNORMAL [None]
  - MEAN CELL VOLUME ABNORMAL [None]
  - NEUTROPENIA [None]
  - RECTAL HAEMORRHAGE [None]
  - TOOTH DISORDER [None]
  - TOOTH INFECTION [None]
